FAERS Safety Report 5393481-0 (Version None)
Quarter: 2007Q3

REPORT INFORMATION
  Report Type: 
  Country: None (occurrence: None)
  Receive Date: 20070723
  Receipt Date: 20060614
  Transmission Date: 20080115
  Serious: No
  Sender: FDA-Public Use
  Company Number: A0609481A

PATIENT
  Age: 56 Year
  Sex: Male

DRUGS (6)
  1. AVANDIA [Suspect]
     Dosage: 8MG PER DAY
     Route: 048
  2. ASPIRIN [Concomitant]
  3. COZAAR [Concomitant]
  4. GLYBURIDE [Concomitant]
  5. MOTRIN [Concomitant]
  6. TYLENOL (CAPLET) [Concomitant]

REACTIONS (2)
  - BLOOD GLUCOSE INCREASED [None]
  - DRUG INEFFECTIVE [None]
